FAERS Safety Report 9026222 (Version 1)
Quarter: 2013Q1

REPORT INFORMATION
  Report Type: Spontaneous
  Country: BR (occurrence: BR)
  Receive Date: 20130123
  Receipt Date: 20130123
  Transmission Date: 20140127
  Serious: Yes (Death, Life-Threatening, Other)
  Sender: FDA-Public Use
  Company Number: PHHY2013BR005925

PATIENT
  Sex: Male

DRUGS (1)
  1. DIOVAN HCT [Suspect]
     Indication: BLOOD PRESSURE
     Dosage: 1 DF (320 MG VAL/ 12.5 MG HCT) A DAY

REACTIONS (6)
  - Pulmonary sepsis [Fatal]
  - Arterial disorder [Fatal]
  - Aortic aneurysm [Fatal]
  - Coma [Unknown]
  - Venous occlusion [Unknown]
  - Thrombosis [Unknown]
